FAERS Safety Report 10442632 (Version 1)
Quarter: 2014Q3

REPORT INFORMATION
  Report Type: Spontaneous
  Country: ES (occurrence: None)
  Receive Date: 20140908
  Receipt Date: 20140908
  Transmission Date: 20150326
  Serious: Yes (Hospitalization)
  Sender: FDA-Public Use
  Company Number: E2B_7317387

PATIENT
  Age: 77 Year
  Sex: Female

DRUGS (2)
  1. EUTIROX (LEVOTHYROXINE SODIUM) (75 MICROGRAM) (LEVOTHYROXINE SODIUM) [Suspect]
     Active Substance: LEVOTHYROXINE SODIUM
     Indication: HYPOTHYROIDISM
     Route: 048
     Dates: start: 20140304, end: 20140324
  2. ALDACTONE [Concomitant]
     Active Substance: SPIRONOLACTONE

REACTIONS (2)
  - Supraventricular tachyarrhythmia [None]
  - Cardiac failure [None]

NARRATIVE: CASE EVENT DATE: 20140315
